FAERS Safety Report 12757632 (Version 1)
Quarter: 2016Q3

REPORT INFORMATION
  Report Type: Report from Study
  Country: IT (occurrence: IT)
  Receive Date: 20160919
  Receipt Date: 20160919
  Transmission Date: 20161109
  Serious: Yes (Other)
  Sender: FDA-Public Use
  Company Number: IT-ACCORD-043961

PATIENT
  Age: 75 Year
  Sex: Male

DRUGS (4)
  1. FOLINIC ACID [Suspect]
     Active Substance: LEUCOVORIN
     Indication: COLORECTAL CANCER METASTATIC
     Dosage: FOLFIRI
     Route: 042
     Dates: start: 20160303, end: 20160303
  2. FLUOROURACIL. [Suspect]
     Active Substance: FLUOROURACIL
     Indication: COLORECTAL CANCER METASTATIC
     Dosage: ALSO RECEIVED 708.9 MG CYCLICAL IV BOLUS ON 03-MAR-2016.??FOLFIRI
     Route: 042
     Dates: start: 20160303
  3. IRINOTECAN [Suspect]
     Active Substance: IRINOTECAN
     Indication: COLORECTAL CANCER METASTATIC
     Dosage: FOLFIRI
     Route: 042
     Dates: start: 20160303, end: 20160303
  4. AFLIBERCEPT [Suspect]
     Active Substance: AFLIBERCEPT
     Indication: COLORECTAL CANCER METASTATIC
     Route: 042
     Dates: start: 20160303, end: 20160303

REACTIONS (8)
  - Rectal tenesmus [Unknown]
  - Asthenia [Unknown]
  - Alopecia [Unknown]
  - Dysphonia [Recovered/Resolved]
  - Leukopenia [Recovered/Resolved]
  - Diarrhoea [Recovered/Resolved]
  - Back pain [Recovered/Resolved]
  - Nausea [Unknown]

NARRATIVE: CASE EVENT DATE: 20160303
